FAERS Safety Report 5645355-5 (Version None)
Quarter: 2008Q1

REPORT INFORMATION
  Report Type: 
  Country: None (occurrence: None)
  Receive Date: 20080229
  Receipt Date: 20080227
  Transmission Date: 20080703
  Serious: Yes (Hospitalization)
  Sender: FDA-Public Use
  Company Number: B0510086A

PATIENT
  Age: 71 Year
  Sex: Male

DRUGS (2)
  1. ADARTREL [Suspect]
     Indication: RESTLESS LEGS SYNDROME
     Dosage: 2MG PER DAY
     Route: 048
     Dates: start: 20070901, end: 20080220
  2. TRIATEC [Concomitant]
     Indication: HYPERTENSION
     Route: 048

REACTIONS (6)
  - BRADYCARDIA [None]
  - ELECTROCARDIOGRAM QT PROLONGED [None]
  - MALAISE [None]
  - PALLOR [None]
  - SUDDEN ONSET OF SLEEP [None]
  - SYNCOPE [None]
